APPROVED DRUG PRODUCT: TRIPROLIDINE HYDROCHLORIDE AND PSEUDOEPHEDRINE HYDROCHLORIDE
Active Ingredient: PSEUDOEPHEDRINE HYDROCHLORIDE; TRIPROLIDINE HYDROCHLORIDE
Strength: 60MG;2.5MG
Dosage Form/Route: TABLET;ORAL
Application: A088578 | Product #001
Applicant: SUPERPHARM CORP
Approved: Feb 21, 1985 | RLD: No | RS: No | Type: DISCN